FAERS Safety Report 9537576 (Version 1)
Quarter: 2013Q3

REPORT INFORMATION
  Report Type: Spontaneous
  Country: GB (occurrence: GB)
  Receive Date: 20130919
  Receipt Date: 20130919
  Transmission Date: 20140515
  Serious: Yes (Other)
  Sender: FDA-Public Use
  Company Number: GB-TEVA-431582ISR

PATIENT
  Age: 66 Year
  Sex: Female
  Weight: 71.4 kg

DRUGS (4)
  1. ERYTHROMYCIN [Suspect]
     Dates: start: 20130816
  2. ALENDRONIC ACID [Concomitant]
     Dates: start: 20130429, end: 20130624
  3. CALCIUM CARBONATE [Concomitant]
     Dates: start: 20130429, end: 20130624
  4. METROGEL [Concomitant]
     Dates: start: 20130819

REACTIONS (2)
  - Swelling face [Unknown]
  - Rash [Unknown]
